FAERS Safety Report 13541197 (Version 1)
Quarter: 2017Q2

REPORT INFORMATION
  Report Type: Spontaneous
  Country: US (occurrence: US)
  Receive Date: 20170512
  Receipt Date: 20170512
  Transmission Date: 20170830
  Serious: Yes (Other)
  Sender: FDA-Public Use
  Company Number: US-BAYER-2017-088109

PATIENT
  Age: 83 Year
  Sex: Female

DRUGS (1)
  1. BAYER ASPIRIN [Suspect]
     Active Substance: ASPIRIN
     Indication: TEMPORAL ARTERITIS
     Dosage: UNK

REACTIONS (2)
  - Off label use [None]
  - Blindness [None]
